FAERS Safety Report 25930140 (Version 1)
Quarter: 2025Q4

REPORT INFORMATION
  Report Type: Other
  Country: GB (occurrence: GB)
  Receive Date: 20251016
  Receipt Date: 20251016
  Transmission Date: 20260118
  Serious: Yes (Hospitalization, Other)
  Sender: GLENMARK
  Company Number: None

PATIENT
  Age: 72 Year
  Sex: Male

DRUGS (2)
  1. DAPAGLIFLOZIN [Suspect]
     Active Substance: DAPAGLIFLOZIN
     Indication: Hypertension
     Dosage: 5 MILLILITER, OD
     Route: 065
     Dates: start: 20250912, end: 20250915
  2. RAMIPRIL [Concomitant]
     Active Substance: RAMIPRIL
     Indication: Hypertension
     Dosage: UNK
     Route: 065
     Dates: start: 20210911, end: 20251002

REACTIONS (4)
  - Swollen tongue [Unknown]
  - Gout [Recovering/Resolving]
  - Choking [Unknown]
  - Vomiting [Unknown]

NARRATIVE: CASE EVENT DATE: 20250901
